FAERS Safety Report 21891649 (Version 1)
Quarter: 2023Q1

REPORT INFORMATION
  Report Type: Spontaneous
  Country: US (occurrence: US)
  Receive Date: 20230120
  Receipt Date: 20230120
  Transmission Date: 20230417
  Serious: No
  Sender: FDA-Public Use
  Company Number: US-MIRM-000673

PATIENT
  Sex: Female

DRUGS (9)
  1. MARALIXIBAT CHLORIDE [Suspect]
     Active Substance: MARALIXIBAT CHLORIDE
     Indication: Product used for unknown indication
     Route: 048
     Dates: start: 20211123
  2. Naltrexone HCl dihydrate [Concomitant]
  3. NEXIUM [Concomitant]
     Active Substance: ESOMEPRAZOLE MAGNESIUM
  4. CLONAZEPAM [Concomitant]
     Active Substance: CLONAZEPAM
  5. KEPPRA [Concomitant]
     Active Substance: LEVETIRACETAM
  6. PEPCID AC [Concomitant]
     Active Substance: FAMOTIDINE
  7. RIFAMATE [Concomitant]
     Active Substance: ISONIAZID\RIFAMPIN
  8. URSODIOL [Concomitant]
     Active Substance: URSODIOL
  9. VIMPAT [Concomitant]
     Active Substance: LACOSAMIDE

REACTIONS (1)
  - Diarrhoea [Unknown]
